FAERS Safety Report 7430305-1 (Version None)
Quarter: 2011Q2

REPORT INFORMATION
  Report Type: 
  Country: None (occurrence: None)
  Receive Date: 20110421
  Receipt Date: 20110418
  Transmission Date: 20111010
  Serious: Yes (Death, Life-Threatening, Hospitalization, Other)
  Sender: FDA-Public Use
  Company Number: FR-ELI_LILLY_AND_COMPANY-FR201104005057

PATIENT
  Age: 75 Year
  Sex: Female

DRUGS (3)
  1. FLECAINE [Concomitant]
     Indication: CARDIAC DISORDER
     Dosage: UNK, UNKNOWN
     Route: 048
     Dates: start: 20100801, end: 20110304
  2. FONDAPARINUX SODIUM [Concomitant]
     Indication: CARDIAC DISORDER
     Dosage: UNK, UNKNOWN
     Route: 065
     Dates: start: 20100801
  3. GEMZAR [Suspect]
     Indication: SQUAMOUS CELL CARCINOMA
     Dosage: 1250 MG/M2, UNKNOWN
     Route: 042
     Dates: start: 20100819, end: 20101102

REACTIONS (5)
  - INTERSTITIAL LUNG DISEASE [None]
  - LUNG INFECTION [None]
  - GENERAL PHYSICAL HEALTH DETERIORATION [None]
  - LUNG DISORDER [None]
  - RESPIRATORY DISTRESS [None]
